FAERS Safety Report 17888953 (Version 2)
Quarter: 2020Q2

REPORT INFORMATION
  Report Type: Spontaneous
  Country: US (occurrence: US)
  Receive Date: 20200612
  Receipt Date: 20200617
  Transmission Date: 20200714
  Serious: No
  Sender: FDA-Public Use
  Company Number: US-SA-2020SA149499

PATIENT

DRUGS (1)
  1. DUPIXENT [Suspect]
     Active Substance: DUPILUMAB
     Indication: DERMATITIS ATOPIC
     Dosage: 300 MG, QOW
     Route: 058
     Dates: start: 20191220

REACTIONS (4)
  - Product dose omission [Unknown]
  - Systemic lupus erythematosus rash [Unknown]
  - Insomnia [Not Recovered/Not Resolved]
  - Eczema [Not Recovered/Not Resolved]
